FAERS Safety Report 11856180 (Version 1)
Quarter: 2015Q4

REPORT INFORMATION
  Report Type: Spontaneous
  Country: US (occurrence: US)
  Receive Date: 20151221
  Receipt Date: 20151221
  Transmission Date: 20160305
  Serious: No
  Sender: FDA-Public Use
  Company Number: US-BANPHARM-20154379

PATIENT
  Age: 65 Year
  Sex: Male

DRUGS (1)
  1. CALCITRIOL CAPSULES 0.5 MCG [Suspect]
     Active Substance: CALCITRIOL

REACTIONS (2)
  - Adverse event [Unknown]
  - Product quality issue [Unknown]
